FAERS Safety Report 18376272 (Version 1)
Quarter: 2020Q4

REPORT INFORMATION
  Report Type: Spontaneous
  Country: US (occurrence: US)
  Receive Date: 20201011
  Receipt Date: 20201011
  Transmission Date: 20210114
  Serious: Yes (Hospitalization)
  Sender: FDA-Public Use
  Company Number: None

PATIENT
  Age: 30 Year
  Sex: Female
  Weight: 74.25 kg

DRUGS (7)
  1. VANCOMYCIN [Suspect]
     Active Substance: VANCOMYCIN
     Indication: ARTHRITIS BACTERIAL
     Route: 042
     Dates: start: 20200925, end: 20201009
  2. VISTERAL [Concomitant]
  3. STOMACH CRAMPING PILL [Concomitant]
  4. STOOL SOFTENER (DOCUSATE) [Concomitant]
     Active Substance: DOCUSATE
  5. TYLENOL [Concomitant]
     Active Substance: ACETAMINOPHEN
  6. PROBIOTIC FOR STOMACH [Concomitant]
  7. CUBICIN [Concomitant]
     Active Substance: DAPTOMYCIN

REACTIONS (10)
  - Cheilitis [None]
  - Tongue eruption [None]
  - Swelling [None]
  - Throat tightness [None]
  - Dysphonia [None]
  - Infusion related reaction [None]
  - Urticaria [None]
  - Erythema [None]
  - Blister [None]
  - Rash [None]

NARRATIVE: CASE EVENT DATE: 20201008
